FAERS Safety Report 8480853-0 (Version None)
Quarter: 2012Q2

REPORT INFORMATION
  Report Type: 
  Country: None (occurrence: None)
  Receive Date: 20120625
  Receipt Date: 20120611
  Transmission Date: 20120825
  Serious: Yes (Hospitalization)
  Sender: FDA-Public Use
  Company Number: JP-2012-15494

PATIENT
  Age: 76 Year
  Sex: Female

DRUGS (2)
  1. PLETAL [Suspect]
     Dosage: 6000 MG MILIGRAM(S), DAILY DOSE,ORAL
     Route: 048
     Dates: end: 20120611
  2. ACETAMINOPHEN [Suspect]
     Dosage: ORAL
     Route: 048
     Dates: end: 20120611

REACTIONS (3)
  - SUICIDE ATTEMPT [None]
  - DEPRESSED LEVEL OF CONSCIOUSNESS [None]
  - MULTIPLE DRUG OVERDOSE [None]
